FAERS Safety Report 20852378 (Version 2)
Quarter: 2022Q3

REPORT INFORMATION
  Report Type: Spontaneous
  Country: US (occurrence: US)
  Receive Date: 20220520
  Receipt Date: 20220825
  Transmission Date: 20221027
  Serious: No
  Sender: FDA-Public Use
  Company Number: US-BIOCON-BCN-2022-000078

PATIENT
  Age: 78 Year
  Sex: Female
  Weight: 56.8 kg

DRUGS (9)
  1. EVEROLIMUS [Suspect]
     Active Substance: EVEROLIMUS
     Indication: Breast cancer
     Dates: start: 20220211
  2. CYCLOBENZAPRINE [Concomitant]
     Active Substance: CYCLOBENZAPRINE
     Indication: Product used for unknown indication
  3. DICLOFENAC [Concomitant]
     Active Substance: DICLOFENAC
     Indication: Product used for unknown indication
  4. CYCLOSPORINE [Concomitant]
     Active Substance: CYCLOSPORINE
     Indication: Product used for unknown indication
  5. ESOMEPRAZOLE [Concomitant]
     Active Substance: ESOMEPRAZOLE
     Indication: Gastrooesophageal reflux disease
  6. LEVOTHYROXINE [Concomitant]
     Active Substance: LEVOTHYROXINE
     Indication: Hypothyroidism
  7. Vitamin Combination [Concomitant]
     Indication: Vitamin supplementation
  8. HYDROXYCHLOROQUINE [Concomitant]
     Active Substance: HYDROXYCHLOROQUINE
     Indication: Product used for unknown indication
  9. MAGNESIUM [Concomitant]
     Active Substance: MAGNESIUM
     Indication: Product used for unknown indication

REACTIONS (2)
  - Accidental exposure to product packaging [Unknown]
  - No adverse event [Unknown]

NARRATIVE: CASE EVENT DATE: 20220212
